FAERS Safety Report 5067261-X (Version None)
Quarter: 2006Q3

REPORT INFORMATION
  Report Type: 
  Country: None (occurrence: None)
  Receive Date: 20060727
  Receipt Date: 20060713
  Transmission Date: 20061208
  Serious: Yes (Other)
  Sender: FDA-Public Use
  Company Number: 13551

PATIENT
  Age: 35 Year
  Sex: Male

DRUGS (7)
  1. BLEOMYCIN [Suspect]
     Indication: LYMPHOMA
     Dosage: 20 UNITS ONCE IV
     Route: 042
     Dates: start: 20060216, end: 20060217
  2. TENOFOVIR/ENTRICITABINE [Concomitant]
     Indication: LYMPHOMA
     Dosage: 20 UNITS ONCE IV
     Route: 042
     Dates: start: 20060216, end: 20060217
  3. TENOFOVIR/ENTRICITABINE [Concomitant]
  4. DOXORUBICIN [Concomitant]
  5. VINBLASTINE [Concomitant]
  6. DACARBAZINE [Concomitant]
  7. EFAVIRENZ [Concomitant]

REACTIONS (8)
  - COAGULOPATHY [None]
  - DRUG INTERACTION [None]
  - DRUG TOXICITY [None]
  - ENCEPHALOPATHY [None]
  - HYPOTHERMIA [None]
  - LIVER FUNCTION TEST ABNORMAL [None]
  - LUNG INFILTRATION [None]
  - MUSCLE SPASTICITY [None]
